FAERS Safety Report 8300481-7 (Version None)
Quarter: 2012Q2

REPORT INFORMATION
  Report Type: 
  Country: None (occurrence: None)
  Receive Date: 20120420
  Receipt Date: 20120406
  Transmission Date: 20120825
  Serious: Yes (Hospitalization)
  Sender: FDA-Public Use
  Company Number: IT-MYLANLABS-2012S1007562

PATIENT
  Age: 13 Year
  Sex: Male

DRUGS (2)
  1. RISPERIDONE [Suspect]
     Indication: EATING DISORDER
     Route: 048
     Dates: start: 20110401, end: 20120329
  2. SERTRALINE HYDROCHLORIDE [Suspect]
     Indication: EATING DISORDER
     Route: 048
     Dates: start: 20110301, end: 20120329

REACTIONS (2)
  - MYALGIA [None]
  - BLOOD CREATINE PHOSPHOKINASE INCREASED [None]
